FAERS Safety Report 25179138 (Version 2)
Quarter: 2025Q2

REPORT INFORMATION
  Report Type: Spontaneous
  Country: CN (occurrence: CN)
  Receive Date: 20250409
  Receipt Date: 20250422
  Transmission Date: 20250716
  Serious: Yes (Hospitalization, Other)
  Sender: PFIZER
  Company Number: CN-009507513-2110CHN002306

PATIENT
  Age: 22 Year
  Sex: Female
  Weight: 55 kg

DRUGS (9)
  1. CYTARABINE [Suspect]
     Active Substance: CYTARABINE
     Indication: Acute myeloid leukaemia
     Dosage: 162 MG, 1X/DAY (QD)
     Route: 041
     Dates: start: 20210919, end: 20210925
  2. CYTARABINE [Suspect]
     Active Substance: CYTARABINE
     Indication: Chemotherapy
  3. DAUNORUBICIN HYDROCHLORIDE [Suspect]
     Active Substance: DAUNORUBICIN HYDROCHLORIDE
     Indication: Chemotherapy
     Dosage: 146 MG, 1X/DAY (QD)
     Route: 041
     Dates: start: 20210919, end: 20210921
  4. DAUNORUBICIN HYDROCHLORIDE [Suspect]
     Active Substance: DAUNORUBICIN HYDROCHLORIDE
     Indication: Acute myeloid leukaemia
  5. NOXAFIL [Suspect]
     Active Substance: POSACONAZOLE
     Indication: Fungal infection
     Dosage: 5 ML, 3X/DAY (TID, TOTAL OF 15 ML/DAY)
     Route: 048
     Dates: start: 20210921, end: 20211003
  6. MEROPENEM [Suspect]
     Active Substance: MEROPENEM
     Indication: Anti-infective therapy
     Dosage: 1 G, 3X/DAY (FREQ: EVERY 8 HOURS)
     Route: 041
     Dates: start: 20210917, end: 20211004
  7. SODIUM CHLORIDE [Concomitant]
     Active Substance: SODIUM CHLORIDE
     Indication: Medication dilution
     Dosage: 100 ML, 3X/DAY (FREQ: EVERY 8 HOURS)
     Route: 041
     Dates: start: 20210917, end: 20211004
  8. SODIUM CHLORIDE [Concomitant]
     Active Substance: SODIUM CHLORIDE
     Dosage: 100 ML, 3X/DAY (FREQ: EVERY 8 HOURS)
     Route: 041
     Dates: start: 20210919, end: 20210921
  9. SODIUM CHLORIDE [Concomitant]
     Active Substance: SODIUM CHLORIDE
     Dosage: 1000 ML, 3X/DAY (FREQ: EVERY 8 HOURS)
     Route: 041
     Dates: start: 20210919, end: 20210925

REACTIONS (2)
  - Erythema multiforme [Recovering/Resolving]
  - Drug eruption [Recovering/Resolving]

NARRATIVE: CASE EVENT DATE: 20210928
